FAERS Safety Report 8658674 (Version 2)
Quarter: 2013Q1

REPORT INFORMATION
  Report Type: Spontaneous
  Country: US (occurrence: US)
  Receive Date: 20120710
  Receipt Date: 20130213
  Transmission Date: 20140127
  Serious: Yes (Other)
  Sender: FDA-Public Use
  Company Number: US-BAYER-2012-067996

PATIENT
  Age: 27 Year
  Sex: Female

DRUGS (2)
  1. MIRENA [Suspect]
     Indication: CONTRACEPTION
     Dosage: 20 MCG/24HR, CONT
     Route: 015
     Dates: start: 20120315, end: 20120426
  2. MIRENA [Suspect]
     Indication: MENOMETRORRHAGIA

REACTIONS (5)
  - Genital haemorrhage [None]
  - Medical device discomfort [None]
  - Abdominal pain [None]
  - Dyspareunia [None]
  - Device difficult to use [None]
